FAERS Safety Report 14941246 (Version 3)
Quarter: 2020Q2

REPORT INFORMATION
  Report Type: Report from Study
  Country: CN (occurrence: CN)
  Receive Date: 20180525
  Receipt Date: 20200520
  Transmission Date: 20200713
  Serious: Yes (Hospitalization)
  Sender: FDA-Public Use
  Company Number: CN-AMGEN-CHNCT2018070582

PATIENT
  Age: 48 Year
  Sex: Male

DRUGS (18)
  1. CALCIUM CARBONATE WITH D3 [Concomitant]
     Active Substance: CALCIUM CARBONATE\CHOLECALCIFEROL
     Indication: PROPHYLAXIS
     Dosage: 500 MG, QD
     Route: 065
     Dates: start: 20180124
  2. CALCITRIOL. [Concomitant]
     Active Substance: CALCITRIOL
     Indication: CHRONIC KIDNEY DISEASE-MINERAL AND BONE DISORDER
     Dosage: 0.25 UG, QD
     Route: 048
     Dates: start: 20170502
  3. AMLODIPINE BESILATE [Concomitant]
     Active Substance: AMLODIPINE BESYLATE
     Indication: HYPERTENSION
     Dosage: 5 MILLIGRAM, BID
     Route: 048
     Dates: start: 20170401
  4. CINACALCET HCL [Suspect]
     Active Substance: CINACALCET HYDROCHLORIDE
     Dosage: 25 MILLIGRAM, QD
     Route: 048
  5. FOLIC ACID. [Concomitant]
     Active Substance: FOLIC ACID
     Indication: NEPHROGENIC ANAEMIA
     Dosage: 5 MG, TID
     Route: 048
     Dates: start: 20161114
  6. DANSHEN COMBO [Concomitant]
     Indication: CORONARY ARTERY DISEASE
     Dosage: 10 DF, TID
     Route: 048
     Dates: start: 20161123
  7. VITAMIN B [Concomitant]
     Active Substance: VITAMIN B
     Indication: HYPOVITAMINOSIS
     Dosage: 1 DF, TID
     Route: 048
     Dates: start: 20161114
  8. CINACALCET HCL [Suspect]
     Active Substance: CINACALCET HYDROCHLORIDE
     Dosage: 50 MILLIGRAM, QD
     Route: 048
  9. HEPARIN SODIUM. [Concomitant]
     Active Substance: HEPARIN SODIUM
     Indication: CHRONIC KIDNEY DISEASE
     Dosage: 125 THOUSAND U, 4 TIMES/WEEK
     Route: 065
     Dates: start: 20171101
  10. RECOMBINANT HUMAN ERYTHROPOIETIN [Concomitant]
     Active Substance: ERYTHROPOIETIN
     Indication: NEPHROGENIC ANAEMIA
     Dosage: 10000U, ONE TIME/14DAYS
     Route: 058
     Dates: start: 20170501
  11. CLOPIDOGREL HYDROGEN SULFATE [Concomitant]
     Active Substance: CLOPIDOGREL BISULFATE
     Indication: THROMBOSIS PROPHYLAXIS
     Dosage: 50 MG, QD
     Route: 048
     Dates: start: 20171106
  12. CINACALCET HCL [Suspect]
     Active Substance: CINACALCET HYDROCHLORIDE
     Indication: HYPERPARATHYROIDISM SECONDARY
     Dosage: 25 MILLIGRAM, QD
     Route: 048
     Dates: start: 20180208
  13. METOPROLOL TARTRATE. [Concomitant]
     Active Substance: METOPROLOL TARTRATE
     Indication: HYPERTENSION
     Dosage: 47.2MG*2 QD
     Route: 048
     Dates: start: 20170401
  14. ENOXAPARIN SODIUM. [Concomitant]
     Active Substance: ENOXAPARIN SODIUM
     Indication: CHRONIC KIDNEY DISEASE
     Dosage: 4000AXALU, 4TIMES/WEEK
     Route: 042
     Dates: start: 20170805
  15. LANTHANUM CARBONATE. [Concomitant]
     Active Substance: LANTHANUM CARBONATE
     Indication: HYPERPHOSPHATAEMIA
     Dosage: 500 MG, QD
     Route: 065
     Dates: start: 20171106
  16. DEXKETOPROFEN TROMETAMOL FAHRENHEIT [Concomitant]
     Indication: ANALGESIC THERAPY
     Dosage: 25 MG, BID
     Route: 048
     Dates: start: 20180516, end: 201805
  17. SODIUM BICARBONATE. [Concomitant]
     Active Substance: SODIUM BICARBONATE
     Indication: METABOLIC ACIDOSIS
     Dosage: 1.0 G, TID
     Route: 048
     Dates: start: 20171214
  18. TRIMETAZIDINE DIHYDROCHLORIDE [Concomitant]
     Active Substance: TRIMETAZIDINE DIHYDROCHLORIDE
     Indication: AZOTAEMIA
     Dosage: 20 MG, TID
     Route: 048
     Dates: start: 20161123

REACTIONS (1)
  - Rib fracture [Recovered/Resolved]

NARRATIVE: CASE EVENT DATE: 20180516
